FAERS Safety Report 9522160 (Version 1)
Quarter: 2013Q3

REPORT INFORMATION
  Report Type: Spontaneous
  Country: SE (occurrence: SE)
  Receive Date: 20130913
  Receipt Date: 20130913
  Transmission Date: 20140515
  Serious: No
  Sender: FDA-Public Use
  Company Number: SE-UCBSA-096711

PATIENT
  Age: 74 Year
  Sex: Male
  Weight: 55 kg

DRUGS (4)
  1. KEPPRA [Suspect]
     Indication: EPILEPSY
     Route: 048
     Dates: start: 2010
  2. ZOPIKLON [Concomitant]
     Indication: INSOMNIA
     Route: 048
  3. WARFARIN [Concomitant]
     Dosage: FREQUENCY: DEPENDING ON PK VALUE
     Route: 048
  4. HYDROXIKLOROKIN [Concomitant]
     Indication: ANTIPHOSPHOLIPID SYNDROME
     Route: 048

REACTIONS (2)
  - Thrombocytopenia [Not Recovered/Not Resolved]
  - Intentional drug misuse [Unknown]
